FAERS Safety Report 9813917 (Version 7)
Quarter: 2014Q2

REPORT INFORMATION
  Report Type: Spontaneous
  Country: GB (occurrence: GB)
  Receive Date: 20140113
  Receipt Date: 20140507
  Transmission Date: 20141212
  Serious: Yes (Other)
  Sender: FDA-Public Use
  Company Number: GB-GLAXOSMITHKLINE-B0951019A

PATIENT
  Sex: 0

DRUGS (4)
  1. NIQUITIN [Suspect]
     Indication: EX-TOBACCO USER
     Route: 065
  2. NIQUITIN PATCH [Suspect]
     Indication: EX-TOBACCO USER
     Route: 062
  3. SUPPLEMENT [Concomitant]
     Route: 065
  4. 5-HTP [Concomitant]

REACTIONS (49)
  - Bipolar I disorder [Unknown]
  - Pain [Unknown]
  - Feelings of worthlessness [Unknown]
  - Malaise [Unknown]
  - Crying [Unknown]
  - Nausea [Unknown]
  - Dysgeusia [Unknown]
  - Pruritus [Unknown]
  - Skin burning sensation [Unknown]
  - Nicotine dependence [Unknown]
  - Feeling abnormal [Not Recovered/Not Resolved]
  - Depressed mood [Unknown]
  - Drug administration error [Unknown]
  - Insomnia [Unknown]
  - Withdrawal syndrome [Unknown]
  - Tremor [Unknown]
  - Panic attack [Unknown]
  - Dizziness [Unknown]
  - Psychomotor hyperactivity [Unknown]
  - Sleep disorder [Unknown]
  - Toothache [Unknown]
  - Swelling face [Unknown]
  - Nicotine dependence [Unknown]
  - Nicotine dependence [Unknown]
  - Balance disorder [Unknown]
  - Fatigue [Unknown]
  - Confusional state [Not Recovered/Not Resolved]
  - Abdominal discomfort [Unknown]
  - Ill-defined disorder [Unknown]
  - Gingival pain [Unknown]
  - Wrong technique in drug usage process [Unknown]
  - Pyrexia [Unknown]
  - Hyperhidrosis [Unknown]
  - Discomfort [Unknown]
  - Renal pain [Unknown]
  - Increased upper airway secretion [Unknown]
  - Depressed mood [Unknown]
  - Depression [Unknown]
  - Abnormal dreams [Unknown]
  - Ulcer [Unknown]
  - Ill-defined disorder [Unknown]
  - Psychiatric symptom [Unknown]
  - Disturbance in attention [Unknown]
  - Disturbance in attention [Unknown]
  - Judgement impaired [Unknown]
  - Irritability [Unknown]
  - Crying [Unknown]
  - Aggression [Unknown]
  - Restlessness [Unknown]
